FAERS Safety Report 6977465-4 (Version None)
Quarter: 2010Q3

REPORT INFORMATION
  Report Type: 
  Country: None (occurrence: None)
  Receive Date: 20100910
  Receipt Date: 20100831
  Transmission Date: 20110219
  Serious: Yes (Hospitalization)
  Sender: FDA-Public Use
  Company Number: US-WATSON-2010-11684

PATIENT
  Sex: Male

DRUGS (4)
  1. TRELSTAR [Suspect]
     Indication: PROSTATE CANCER
     Dosage: ONE INJECTION Q 3 MONTHS
     Route: 030
     Dates: start: 20070727, end: 20100603
  2. TRELSTAR [Suspect]
     Dosage: ONE INJECTION Q 6 MONTHS
     Route: 030
     Dates: start: 20100604
  3. TOPROL-XL [Concomitant]
     Indication: CARDIAC DISORDER
     Dosage: UNK
     Route: 048
  4. AMARYL [Concomitant]
     Indication: DIABETES MELLITUS
     Dosage: UNK
     Route: 048

REACTIONS (4)
  - ASTHENIA [None]
  - CEREBROVASCULAR ACCIDENT [None]
  - DYSPNOEA [None]
  - HOT FLUSH [None]
